FAERS Safety Report 21759653 (Version 2)
Quarter: 2023Q1

REPORT INFORMATION
  Report Type: Spontaneous
  Country: US (occurrence: US)
  Receive Date: 20221221
  Receipt Date: 20230228
  Transmission Date: 20230418
  Serious: Yes (Other)
  Sender: FDA-Public Use
  Company Number: ES-PADAGIS-2022PAD01217

PATIENT

DRUGS (1)
  1. IMIQUIMOD [Suspect]
     Active Substance: IMIQUIMOD
     Indication: Mucocutaneous disorder
     Dosage: UNK, (DAILY)
     Route: 061

REACTIONS (2)
  - Systemic lupus erythematosus [None]
  - Product use in unapproved indication [Unknown]
